FAERS Safety Report 4632723-3 (Version None)
Quarter: 2005Q2

REPORT INFORMATION
  Report Type: 
  Country: None (occurrence: None)
  Receive Date: 20050412
  Receipt Date: 20050406
  Transmission Date: 20051028
  Serious: Yes (Death)
  Sender: FDA-Public Use
  Company Number: 200511026JP

PATIENT
  Sex: Male

DRUGS (2)
  1. TAXOTERE [Suspect]
     Indication: NEOPLASM MALIGNANT
     Route: 041
     Dates: start: 20030101, end: 20040701
  2. RADIATION THERAPY [Suspect]
     Indication: NEOPLASM MALIGNANT

REACTIONS (4)
  - HAEMATOTOXICITY [None]
  - INTERSTITIAL LUNG DISEASE [None]
  - PHARYNGITIS [None]
  - STOMATITIS [None]
